FAERS Safety Report 8475616 (Version 2)
Quarter: 2012Q4

REPORT INFORMATION
  Report Type: 
  Country: GB (occurrence: GB)
  Receive Date: 20120326
  Receipt Date: 20120925
  Transmission Date: 20130627
  Serious: Yes (Hospitalization, Disabling, Other)
  Sender: FDA-Public Use
  Company Number: GB-MYLANLABS-2012S1005563

PATIENT
  Age: 79 Year
  Sex: Male
  Weight: 70 kg

DRUGS (2)
  1. LISINOPRIL [Suspect]
     Indication: HYPERTENSION
     Dates: start: 2004, end: 200606
  2. BENDROFLUMETHIAZIDE [Concomitant]
     Indication: PRODUCT USED FOR UNKNOWN INDICATION

REACTIONS (9)
  - Atrial fibrillation [Not Recovered/Not Resolved]
  - Burning sensation [Unknown]
  - Paralysis [Recovering/Resolving]
  - Extrasystoles [Recovered/Resolved]
  - Transient ischaemic attack [Unknown]
  - Ulnar nerve palsy [Unknown]
  - Anaesthesia [Recovering/Resolving]
  - Cerebral artery embolism [Unknown]
  - Pain [Unknown]
